FAERS Safety Report 6439044-7 (Version None)
Quarter: 2009Q4

REPORT INFORMATION
  Report Type: 
  Country: None (occurrence: None)
  Receive Date: 20091113
  Receipt Date: 20091106
  Transmission Date: 20100525
  Serious: Yes (Hospitalization)
  Sender: FDA-Public Use
  Company Number: GB-ROCHE-668180

PATIENT
  Age: 48 Year
  Weight: 63.5 kg

DRUGS (4)
  1. NAPROXEN [Suspect]
     Indication: BACK PAIN
     Route: 048
     Dates: start: 20090902, end: 20090904
  2. LEVETIRACETAM [Concomitant]
     Indication: EPILEPSY
     Route: 048
  3. SYMBICORT [Concomitant]
     Indication: ASTHMA
     Route: 055
  4. TERBUTALINE SULFATE [Concomitant]
     Indication: ASTHMA
     Route: 055

REACTIONS (4)
  - DERMATITIS [None]
  - ERYTHEMA MULTIFORME [None]
  - SKIN DISCOLOURATION [None]
  - SKIN LESION [None]
